FAERS Safety Report 14258043 (Version 1)
Quarter: 2020Q3

REPORT INFORMATION
  Report Type: Report from Study
  Country: US (occurrence: US)
  Receive Date: 20171207
  Receipt Date: 20171207
  Transmission Date: 20201104
  Serious: Yes (Hospitalization)
  Sender: FDA-Public Use
  Company Number: US-ASTRAZENECA-2017SF13025

PATIENT
  Age: 58 Year
  Sex: Female

DRUGS (15)
  1. MULTIVITAMIN [Concomitant]
     Active Substance: VITAMINS
     Route: 048
  2. RYTHMOL [Concomitant]
     Active Substance: PROPAFENONE HYDROCHLORIDE
     Route: 048
  3. FIORICET [Concomitant]
     Active Substance: ACETAMINOPHEN\BUTALBITAL\CAFFEINE
     Route: 048
     Dates: start: 20171028
  4. SENNOSIDES. [Concomitant]
     Active Substance: SENNOSIDES
     Route: 048
  5. VIBRAMYCIN [Concomitant]
     Active Substance: DOXYCYCLINE
     Route: 048
     Dates: start: 20171009
  6. TRAMADOL. [Concomitant]
     Active Substance: TRAMADOL
     Route: 048
  7. DOCUSATE CALCIUM. [Concomitant]
     Active Substance: DOCUSATE CALCIUM
     Dosage: AS NEEDED
     Route: 048
  8. EMLA [Concomitant]
     Active Substance: LIDOCAINE\PRILOCAINE
     Route: 061
     Dates: start: 20170530
  9. MEDI4736 [Suspect]
     Active Substance: DURVALUMAB
     Indication: OVARIAN CANCER
     Route: 042
  10. LOMOTIL [Concomitant]
     Active Substance: ATROPINE SULFATE\DIPHENOXYLATE HYDROCHLORIDE
     Route: 048
     Dates: start: 20171028
  11. TYLENOL [Concomitant]
     Active Substance: ACETAMINOPHEN
     Route: 048
  12. METROGEL [Concomitant]
     Active Substance: METRONIDAZOLE
     Dosage: APPLY ONCE DAILY TO FACE
  13. POLYETHYLENE GLYCOL [Concomitant]
     Active Substance: POLYETHYLENE GLYCOLS
     Route: 048
  14. TREMELIMUMAB. [Suspect]
     Active Substance: TREMELIMUMAB
     Indication: OVARIAN CANCER
     Route: 042
  15. PSYLLIUM [Concomitant]
     Active Substance: PLANTAGO SEED
     Dosage: 1 PACKET 3 TIMES A DAY
     Route: 048

REACTIONS (2)
  - Large intestine perforation [Unknown]
  - Pyrexia [Unknown]

NARRATIVE: CASE EVENT DATE: 20171030
